FAERS Safety Report 6124811-X (Version None)
Quarter: 2009Q1

REPORT INFORMATION
  Report Type: 
  Country: None (occurrence: None)
  Receive Date: 20090319
  Receipt Date: 20090312
  Transmission Date: 20090719
  Serious: Yes (Other)
  Sender: FDA-Public Use
  Company Number: PHHY2009CA09279

PATIENT

DRUGS (1)
  1. NEORAL [Suspect]
     Indication: FOCAL SEGMENTAL GLOMERULOSCLEROSIS

REACTIONS (2)
  - ABNORMAL BEHAVIOUR [None]
  - COGNITIVE DISORDER [None]
